FAERS Safety Report 7274751-8 (Version None)
Quarter: 2011Q1

REPORT INFORMATION
  Report Type: 
  Country: None (occurrence: None)
  Receive Date: 20110202
  Receipt Date: 20110202
  Transmission Date: 20110831
  Serious: Yes (Hospitalization)
  Sender: FDA-Public Use
  Company Number: None

PATIENT
  Age: 61 Year
  Sex: Male
  Weight: 113.2 kg

DRUGS (1)
  1. DIVALPROEX [Suspect]
     Indication: HEADACHE
     Dosage: 1000 MG HS PO
     Route: 048
     Dates: start: 20050105, end: 20101211

REACTIONS (6)
  - MENTAL STATUS CHANGES [None]
  - CONFUSIONAL STATE [None]
  - LETHARGY [None]
  - DELIRIUM [None]
  - HYPERAMMONAEMIA [None]
  - PERITONITIS [None]
